FAERS Safety Report 10985614 (Version 1)
Quarter: 2015Q2

REPORT INFORMATION
  Report Type: Spontaneous
  Country: US (occurrence: US)
  Receive Date: 20150404
  Receipt Date: 20150404
  Transmission Date: 20150821
  Serious: No
  Sender: FDA-Public Use
  Company Number: US-SA-2015SA015363

PATIENT
  Age: 70 Year
  Sex: Female

DRUGS (1)
  1. ALLEGRA-D 24 HOUR [Suspect]
     Active Substance: FEXOFENADINE HYDROCHLORIDE\PSEUDOEPHEDRINE HYDROCHLORIDE
     Indication: SEASONAL ALLERGY
     Route: 048

REACTIONS (6)
  - Abdominal discomfort [Unknown]
  - Mobility decreased [Unknown]
  - Dysuria [Unknown]
  - Drug intolerance [Unknown]
  - Micturition urgency [Unknown]
  - Muscular weakness [Unknown]
